FAERS Safety Report 20231726 (Version 1)
Quarter: 2021Q4

REPORT INFORMATION
  Report Type: Spontaneous
  Country: US (occurrence: US)
  Receive Date: 20211227
  Receipt Date: 20211227
  Transmission Date: 20220303
  Serious: No
  Sender: FDA-Public Use
  Company Number: US-AVEO ONCOLOGY-2021-AVEO-US003703

PATIENT

DRUGS (12)
  1. FOTIVDA [Suspect]
     Active Substance: TIVOZANIB HYDROCHLORIDE
     Indication: Renal cell carcinoma
     Dosage: 1.34 MG, DAILY FOR 21 DAYS OFF 7 DAYS
     Route: 048
     Dates: start: 20210920
  2. ACETAMINOPHEN [Concomitant]
     Active Substance: ACETAMINOPHEN
  3. GABAPENTIN [Concomitant]
     Active Substance: GABAPENTIN
  4. HYDROCORTISONE [Concomitant]
     Active Substance: HYDROCORTISONE
  5. PREDNISONE [Concomitant]
     Active Substance: PREDNISONE
  6. LIDOCAINE VISCOUS [Concomitant]
     Active Substance: LIDOCAINE HYDROCHLORIDE
  7. METHOCARBAMOL [Concomitant]
     Active Substance: METHOCARBAMOL
  8. MS CONTIN [Concomitant]
     Active Substance: MORPHINE SULFATE
  9. NORETHINDRONE [Concomitant]
     Active Substance: NORETHINDRONE
  10. OMEPRAZOLE [Concomitant]
     Active Substance: OMEPRAZOLE
  11. ZOFRAN [Concomitant]
     Active Substance: ONDANSETRON HYDROCHLORIDE
  12. MORPHINE SULFATE [Concomitant]
     Active Substance: MORPHINE SULFATE

REACTIONS (1)
  - Tumour pain [Not Recovered/Not Resolved]
